FAERS Safety Report 21195208 (Version 3)
Quarter: 2022Q4

REPORT INFORMATION
  Report Type: Report from Study
  Country: AU (occurrence: AU)
  Receive Date: 20220810
  Receipt Date: 20221010
  Transmission Date: 20230113
  Serious: Yes (Life-Threatening, Hospitalization, Other)
  Sender: FDA-Public Use
  Company Number: AU-NOVARTISPH-NVSC2022AU180383

PATIENT
  Age: 59 Year
  Sex: Female
  Weight: 66 kg

DRUGS (3)
  1. SANDOSTATIN LAR DEPOT [Suspect]
     Active Substance: OCTREOTIDE ACETATE
     Indication: Neuroendocrine tumour
     Dosage: UNK
     Route: 065
  2. SANDOSTATIN LAR DEPOT [Suspect]
     Active Substance: OCTREOTIDE ACETATE
     Dosage: 20 MG
     Route: 065
     Dates: start: 201911
  3. SANDOSTATIN LAR DEPOT [Suspect]
     Active Substance: OCTREOTIDE ACETATE

REACTIONS (15)
  - Myocardial infarction [Recovered/Resolved]
  - Dyspnoea [Unknown]
  - Hyperhidrosis [Unknown]
  - Musculoskeletal pain [Unknown]
  - Fatigue [Unknown]
  - Palpitations [Unknown]
  - Thyroiditis subacute [Recovering/Resolving]
  - Pain in extremity [Unknown]
  - Urine output decreased [Unknown]
  - Pallor [Unknown]
  - Dizziness [Unknown]
  - Oropharyngeal pain [Unknown]
  - Tenderness [Unknown]
  - Blood thyroid stimulating hormone decreased [Unknown]
  - Anti-thyroid antibody negative [Unknown]

NARRATIVE: CASE EVENT DATE: 20220803
